FAERS Safety Report 19006056 (Version 1)
Quarter: 2021Q1

REPORT INFORMATION
  Report Type: Spontaneous
  Country: CN (occurrence: CN)
  Receive Date: 20210314
  Receipt Date: 20210314
  Transmission Date: 20210420
  Serious: Yes (Other)
  Sender: FDA-Public Use
  Company Number: CN-BAXTER-2021BAX004770

PATIENT
  Age: 53 Year
  Sex: Female
  Weight: 63 kg

DRUGS (19)
  1. TAXOTERE [Suspect]
     Active Substance: DOCETAXEL
     Dosage: DOSE RE?INTRODUCED; TAXOTERE + NS
     Route: 041
  2. PHARMORUBICIN [Suspect]
     Active Substance: EPIRUBICIN
     Indication: BREAST CANCER FEMALE
     Dosage: 1ST CHEMOTHERAPY; PHARMORUBICIN + NS
     Route: 041
  3. 0.9% SODIUM CHLORIDE INJECTION [Suspect]
     Active Substance: SODIUM CHLORIDE
     Dosage: DOSE RE?INTRODUCED; ENDOXAN + NS
     Route: 041
  4. 0.9% SODIUM CHLORIDE INJECTION [Suspect]
     Active Substance: SODIUM CHLORIDE
     Dosage: 2ND CHEMOTHERAPY; TAXOTERE 100 MG + NS 250 ML
     Route: 041
     Dates: start: 20210202, end: 20210202
  5. PHARMORUBICIN [Suspect]
     Active Substance: EPIRUBICIN
     Dosage: 2ND CHEMOTHERAPY; PHARMORUBICIN 100 MG + NS 100 ML
     Route: 041
     Dates: start: 20210202, end: 20210202
  6. PHARMORUBICIN [Suspect]
     Active Substance: EPIRUBICIN
     Dosage: DOSE RE?INTRODUCED; PHARMORUBICIN + NS
     Route: 041
  7. 0.9% SODIUM CHLORIDE INJECTION [Suspect]
     Active Substance: SODIUM CHLORIDE
     Indication: MEDICATION DILUTION
     Dosage: 1ST CHEMOTHERAPY; ENDOXAN + NS
     Route: 041
  8. 0.9% SODIUM CHLORIDE INJECTION [Suspect]
     Active Substance: SODIUM CHLORIDE
     Dosage: 2ND CHEMOTHERAPY; ENDOXAN 800 MG + NS 40 ML
     Route: 041
     Dates: start: 20210202, end: 20210202
  9. 0.9% SODIUM CHLORIDE INJECTION [Suspect]
     Active Substance: SODIUM CHLORIDE
     Dosage: 2ND CHEMOTHERAPY; PHARMORUBICIN 100 MG + NS 100 ML
     Route: 041
     Dates: start: 20210202, end: 20210202
  10. TAXOTERE [Suspect]
     Active Substance: DOCETAXEL
     Dosage: 2ND CHEMOTHERAPY; TAXOTERE 100 MG + NS 250 ML
     Route: 041
     Dates: start: 20210202, end: 20210202
  11. JINYULI [Concomitant]
     Indication: PROPHYLAXIS
     Route: 058
     Dates: start: 20210203
  12. ENDOXAN [Suspect]
     Active Substance: CYCLOPHOSPHAMIDE
     Dosage: DOSE RE?INTRODUCED; ENDOXAN + NS
     Route: 041
  13. ENDOXAN [Suspect]
     Active Substance: CYCLOPHOSPHAMIDE
     Dosage: 2ND CHEMOTHERAPY; ENDOXAN 800 MG + NS 40 ML
     Route: 041
     Dates: start: 20210202, end: 20210202
  14. TAXOTERE [Suspect]
     Active Substance: DOCETAXEL
     Indication: BREAST CANCER FEMALE
     Dosage: 1ST CHEMOTHERAPY; TAXOTERE + NS
     Route: 041
  15. ENDOXAN [Suspect]
     Active Substance: CYCLOPHOSPHAMIDE
     Indication: BREAST CANCER FEMALE
     Dosage: 1ST CHEMOTHERAPY; ENDOXAN + NS
     Route: 041
  16. 0.9% SODIUM CHLORIDE INJECTION [Suspect]
     Active Substance: SODIUM CHLORIDE
     Dosage: 1ST CHEMOTHERAPY; TAXOTERE + NS
     Route: 041
  17. 0.9% SODIUM CHLORIDE INJECTION [Suspect]
     Active Substance: SODIUM CHLORIDE
     Dosage: DOSE RE?INTRODUCED; TAXOTERE + NS
     Route: 041
  18. 0.9% SODIUM CHLORIDE INJECTION [Suspect]
     Active Substance: SODIUM CHLORIDE
     Dosage: 1ST CHEMOTHERAPY; PHARMORUBICIN + NS
     Route: 041
  19. 0.9% SODIUM CHLORIDE INJECTION [Suspect]
     Active Substance: SODIUM CHLORIDE
     Dosage: DOSE RE?INTRODUCED; PHARMORUBICIN + NS
     Route: 041

REACTIONS (2)
  - Agranulocytosis [Recovered/Resolved]
  - White blood cell count decreased [Recovered/Resolved]

NARRATIVE: CASE EVENT DATE: 20210208
